FAERS Safety Report 5334828-0 (Version None)
Quarter: 2007Q2

REPORT INFORMATION
  Report Type: 
  Country: None (occurrence: None)
  Receive Date: 20070308
  Receipt Date: 20070117
  Transmission Date: 20071010
  Serious: No
  Sender: FDA-Public Use
  Company Number: 2006-BP-11695BP

PATIENT
  Age: 83 Year
  Sex: Female

DRUGS (10)
  1. SPIRIVA [Suspect]
     Indication: CHRONIC OBSTRUCTIVE PULMONARY DISEASE
     Dosage: 18  MCG (18 MCG, 1 IN 1 D), IH
     Route: 055
     Dates: start: 20051001
  2. SPIRIVA [Suspect]
     Indication: EMPHYSEMA
     Dosage: 18  MCG (18 MCG, 1 IN 1 D), IH
     Route: 055
     Dates: start: 20051001
  3. SPIRIVA [Suspect]
  4. OXYGEN (OXYGEN) [Concomitant]
  5. LOVASTATIN [Concomitant]
  6. FUROSEMIDE [Concomitant]
  7. ASPIRIN [Concomitant]
  8. ALBUTEROL [Concomitant]
  9. ISOSORBIDE (ISOSORBIDE) [Concomitant]
  10. NITROGLYCERIN [Concomitant]

REACTIONS (2)
  - DRUG INEFFECTIVE [None]
  - DYSPNOEA [None]
